FAERS Safety Report 24917293 (Version 1)
Quarter: 2025Q1

REPORT INFORMATION
  Report Type: Spontaneous
  Country: US (occurrence: US)
  Receive Date: 20250203
  Receipt Date: 20250203
  Transmission Date: 20250409
  Serious: No
  Sender: ANI
  Company Number: US-ANIPHARMA-2025-US-000071

PATIENT
  Sex: Female

DRUGS (24)
  1. REGLAN [Suspect]
     Active Substance: METOCLOPRAMIDE HYDROCHLORIDE
     Indication: Product used for unknown indication
     Route: 048
  2. SENOKOT [Concomitant]
     Active Substance: SENNOSIDES
  3. DELTASONE [Concomitant]
     Active Substance: PREDNISONE
  4. PROTONIX [Concomitant]
     Active Substance: PANTOPRAZOLE SODIUM
  5. ZANAFLEX [Concomitant]
     Active Substance: TIZANIDINE HYDROCHLORIDE
  6. ULTRAM [Concomitant]
     Active Substance: TRAMADOL HYDROCHLORIDE
  7. TRIMPEX [Concomitant]
     Active Substance: TRIMETHOPRIM
  8. SIMETHICONE (DIMETHICONE) [Concomitant]
     Active Substance: DIMETHICONE
  9. LOTRISONE [Concomitant]
     Active Substance: BETAMETHASONE DIPROPIONATE\CLOTRIMAZOLE
  10. BENADRYL [Concomitant]
     Active Substance: DIPHENHYDRAMINE HYDROCHLORIDE
  11. LOVENOX [Concomitant]
     Active Substance: ENOXAPARIN SODIUM
  12. TYLENOL [Concomitant]
     Active Substance: ACETAMINOPHEN
  13. ZYRTEC [Concomitant]
     Active Substance: CETIRIZINE HYDROCHLORIDE
  14. BENZONATATE [Concomitant]
     Active Substance: BENZONATATE
  15. XOLAIR [Concomitant]
     Active Substance: OMALIZUMAB
  16. NORVASC [Concomitant]
     Active Substance: AMLODIPINE BESYLATE
  17. PREDNISONE [Concomitant]
     Active Substance: PREDNISONE
  18. Ketostix [Concomitant]
  19. VOLTAREN [Concomitant]
     Active Substance: DICLOFENAC SODIUM
  20. EPIPEN [Concomitant]
     Active Substance: EPINEPHRINE
  21. DIFLUCAN [Concomitant]
     Active Substance: FLUCONAZOLE
  22. NEURONTIN [Concomitant]
     Active Substance: GABAPENTIN
  23. MOVANTIK [Concomitant]
     Active Substance: NALOXEGOL OXALATE
  24. NARCAN [Concomitant]
     Active Substance: NALOXONE HYDROCHLORIDE

REACTIONS (2)
  - Urticaria [Unknown]
  - Blister [Unknown]
